FAERS Safety Report 8591933-3 (Version None)
Quarter: 2012Q3

REPORT INFORMATION
  Report Type: 
  Country: None (occurrence: None)
  Receive Date: 20120814
  Receipt Date: 20120803
  Transmission Date: 20120928
  Serious: Yes (Hospitalization, Other)
  Sender: FDA-Public Use
  Company Number: GB-PFIZER INC-2012194357

PATIENT
  Age: 84 Year
  Sex: Male

DRUGS (12)
  1. NEBIVOLOL [Concomitant]
     Dosage: UNK
  2. ISOSORBIDE MONONITRATE [Concomitant]
     Dosage: UNK
  3. ADCAL-D3 [Concomitant]
     Dosage: UNK
  4. LISINOPRIL [Concomitant]
     Dosage: UNK
  5. SALBUTAMOL [Concomitant]
     Dosage: UNK
  6. ATORVASTATIN [Concomitant]
     Dosage: UNK
  7. FUROSEMIDE [Concomitant]
     Dosage: UNK
  8. SPIRONOLACTONE [Concomitant]
     Dosage: UNK
  9. ASPIRIN [Concomitant]
     Dosage: UNK
  10. BECLOMETHASONE DIPROPIONATE [Concomitant]
     Dosage: UNK
  11. CLOPIDOGREL [Concomitant]
     Dosage: UNK
  12. AMIODARONE HCL [Suspect]
     Indication: ATRIAL FIBRILLATION
     Dosage: 200 MG, DAILY
     Route: 048
     Dates: start: 20111117, end: 20111230

REACTIONS (4)
  - HYPERTHYROIDISM [None]
  - BLOOD THYROID STIMULATING HORMONE DECREASED [None]
  - THYROXINE FREE INCREASED [None]
  - GOITRE [None]
